FAERS Safety Report 6712390-5 (Version None)
Quarter: 2010Q2

REPORT INFORMATION
  Report Type: 
  Country: None (occurrence: None)
  Receive Date: 20100505
  Receipt Date: 20100423
  Transmission Date: 20101027
  Serious: Yes (Hospitalization)
  Sender: FDA-Public Use
  Company Number: DE-GILEAD-E2B_00000625

PATIENT
  Sex: Female
  Weight: 73 kg

DRUGS (5)
  1. AMBRISENTAN [Suspect]
     Indication: PULMONARY ARTERIAL HYPERTENSION
     Dosage: 5MG UNKNOWN
     Route: 048
     Dates: start: 20091020, end: 20091104
  2. METFORMIN HCL [Concomitant]
     Indication: DIABETES MELLITUS
  3. FALITHROM [Concomitant]
     Indication: PULMONARY ARTERIAL HYPERTENSION
  4. ALISKIREN [Concomitant]
     Indication: HYPERTENSION
  5. AMLODIPINE [Concomitant]

REACTIONS (4)
  - CARDIAC FAILURE [None]
  - HEPATOSPLENOMEGALY [None]
  - OEDEMA [None]
  - WEIGHT INCREASED [None]
